FAERS Safety Report 6521750-7 (Version None)
Quarter: 2009Q4

REPORT INFORMATION
  Report Type: 
  Country: None (occurrence: None)
  Receive Date: 20091230
  Receipt Date: 20091224
  Transmission Date: 20100525
  Serious: Yes (Death)
  Sender: FDA-Public Use
  Company Number: JP-ASTRAZENECA-2009SE32911

PATIENT
  Age: 60 Year
  Sex: Male
  Weight: 42 kg

DRUGS (9)
  1. ANAPEINE 7.5 MG/ML [Suspect]
     Indication: NERVE BLOCK
     Route: 053
     Dates: start: 20091210, end: 20091210
  2. ANAPEINE 7.5 MG/ML [Suspect]
     Indication: ANALGESIC THERAPY
     Route: 053
     Dates: start: 20091210, end: 20091210
  3. ANAPEINE 7.5 MG/ML [Suspect]
     Dosage: MIXED WITH 100 ML WITH SALINE AND ADMINISTERED AT 4 ML/HR
     Route: 053
     Dates: start: 20091210, end: 20091210
  4. ANAPEINE 7.5 MG/ML [Suspect]
     Dosage: MIXED WITH 100 ML WITH SALINE AND ADMINISTERED AT 4 ML/HR
     Route: 053
     Dates: start: 20091210, end: 20091210
  5. XYLOCAINE [Suspect]
     Indication: NERVE BLOCK
     Dosage: 2 PERCENT
     Route: 053
     Dates: start: 20091210, end: 20091210
  6. XYLOCAINE [Suspect]
     Indication: LOCAL ANAESTHESIA
     Dosage: 2 PERCENT
     Route: 053
     Dates: start: 20091210, end: 20091210
  7. XYLOCAINE [Suspect]
     Dosage: 1 PERCENT WITH EPINEPHRINE
     Route: 053
     Dates: start: 20091210, end: 20091210
  8. XYLOCAINE [Suspect]
     Dosage: 1 PERCENT WITH EPINEPHRINE
     Route: 053
     Dates: start: 20091210, end: 20091210
  9. FENTANYL-100 [Concomitant]
     Indication: ANALGESIC THERAPY
     Dosage: 25MCG + 50MCG + 25MCG
     Route: 042
     Dates: start: 20091210, end: 20091210

REACTIONS (2)
  - CARDIAC ARREST [None]
  - RESPIRATORY ARREST [None]
